FAERS Safety Report 8860262 (Version 2)
Quarter: 2012Q4

REPORT INFORMATION
  Report Type: 
  Country: US (occurrence: US)
  Receive Date: 20121025
  Receipt Date: 20121112
  Transmission Date: 20130627
  Serious: Yes (Other)
  Sender: FDA-Public Use
  Company Number: PHEH2012US020757

PATIENT
  Sex: Female

DRUGS (7)
  1. GLEEVEC [Suspect]
  2. DECADRON [Concomitant]
  3. ROFLUMILAST [Concomitant]
     Dosage: 500 mg, UNK
  4. OXYCODONE [Concomitant]
     Dosage: 5 mg, UNK
  5. RANITIDINE [Concomitant]
     Dosage: 150 mg, UNK
  6. POTASSIUM [Concomitant]
     Dosage: 20 mg, UNK
  7. PROPAFENONE [Concomitant]
     Dosage: 225 mg, UNK

REACTIONS (3)
  - Chronic obstructive pulmonary disease [Unknown]
  - Plasma cell myeloma [Unknown]
  - Mastocytosis [Unknown]
